FAERS Safety Report 9280373 (Version 1)
Quarter: 2013Q2

REPORT INFORMATION
  Report Type: Spontaneous
  Country: US (occurrence: None)
  Receive Date: 20130507
  Receipt Date: 20130507
  Transmission Date: 20140414
  Serious: Yes (Other)
  Sender: FDA-Public Use
  Company Number: None

PATIENT
  Age: 58 Year
  Sex: Female
  Weight: 76.2 kg

DRUGS (1)
  1. AVELOX 400 MG BAYER [Suspect]
     Indication: PNEUMONIA
     Route: 048
     Dates: start: 20130430, end: 20130503

REACTIONS (3)
  - Arthralgia [None]
  - Back pain [None]
  - Nervousness [None]
